FAERS Safety Report 4775257-8 (Version None)
Quarter: 2005Q3

REPORT INFORMATION
  Report Type: 
  Country: None (occurrence: None)
  Receive Date: 20050921
  Receipt Date: 20050912
  Transmission Date: 20060218
  Serious: Yes (Hospitalization)
  Sender: FDA-Public Use
  Company Number: US-SANOFI-SYNTHELABO-F03200500131

PATIENT
  Age: 58 Year
  Sex: Male

DRUGS (3)
  1. ELOXATIN [Suspect]
     Indication: COLON CANCER STAGE III
     Dosage: 85 MG/M2 1/2 WEEK
     Route: 042
     Dates: start: 20050121, end: 20050121
  2. FLUOROURACIL [Suspect]
     Indication: COLON CANCER STAGE III
     Dosage: 2400 MG/M2 1/2 WEEK
     Route: 042
     Dates: start: 20050121, end: 20050121
  3. LEUCOVORIN [Suspect]
     Indication: COLON CANCER STAGE III
     Dosage: 400 MG/M2 1/2 WEEK
     Route: 042
     Dates: start: 20050121, end: 20050121

REACTIONS (3)
  - ATELECTASIS [None]
  - DIAPHRAGMATIC PARALYSIS [None]
  - LUNG INFILTRATION [None]
